FAERS Safety Report 4879525-0 (Version None)
Quarter: 2006Q1

REPORT INFORMATION
  Report Type: 
  Country: None (occurrence: None)
  Receive Date: 20060111
  Receipt Date: 20051228
  Transmission Date: 20060701
  Serious: Yes (Hospitalization)
  Sender: FDA-Public Use
  Company Number: 220858

PATIENT
  Age: 27 Year
  Sex: Female

DRUGS (2)
  1. HERCEPTIN [Suspect]
     Indication: BREAST CANCER
     Dosage: 8 MG/KG, INTRAVENOUS
     Route: 042
     Dates: start: 20051214
  2. TAXOTERE [Suspect]
     Indication: BREAST CANCER
     Dosage: 175 MG/KG, INTRAVENOUS
     Route: 042
     Dates: start: 50051214

REACTIONS (2)
  - GASTROENTERITIS [None]
  - TOXIC EPIDERMAL NECROLYSIS [None]
